FAERS Safety Report 9202064 (Version 1)
Quarter: 2013Q2

REPORT INFORMATION
  Report Type: Spontaneous
  Country: GB (occurrence: GB)
  Receive Date: 20130401
  Receipt Date: 20130401
  Transmission Date: 20140414
  Serious: Yes (Other)
  Sender: FDA-Public Use
  Company Number: GB-EISAI INC-E2007-01122-SPO-GB

PATIENT
  Age: 15 Year
  Sex: Male
  Weight: 54 kg

DRUGS (3)
  1. FYCOMPA [Suspect]
     Indication: PARTIAL SEIZURES
     Route: 048
     Dates: start: 20130124, end: 2013
  2. FYCOMPA [Suspect]
     Dosage: DOSE REDUCED (UNKNOWN)
     Route: 048
     Dates: start: 2013
  3. ZONISAMIDE [Concomitant]
     Indication: PRODUCT USED FOR UNKNOWN INDICATION
     Dosage: UNKNOWN
     Route: 048

REACTIONS (6)
  - Vasculitic rash [Not Recovered/Not Resolved]
  - Vasculitis [Not Recovered/Not Resolved]
  - Peripheral coldness [Not Recovered/Not Resolved]
  - Sensory disturbance [Not Recovered/Not Resolved]
  - Pain [Not Recovered/Not Resolved]
  - Swelling [Not Recovered/Not Resolved]
